FAERS Safety Report 10156063 (Version 2)
Quarter: 2014Q2

REPORT INFORMATION
  Report Type: Spontaneous
  Country: US (occurrence: US)
  Receive Date: 20140506
  Receipt Date: 20140506
  Transmission Date: 20141212
  Serious: Yes (Death)
  Sender: FDA-Public Use
  Company Number: US-EXELIXIS-CABO-13003527

PATIENT
  Age: 62 Year
  Sex: Male

DRUGS (1)
  1. COMETRIQ [Suspect]
     Indication: RENAL CANCER
     Dosage: 60 MG, QD
     Route: 048
     Dates: start: 20130531, end: 20130916

REACTIONS (2)
  - Malignant neoplasm progression [Fatal]
  - Off label use [Unknown]
